FAERS Safety Report 6929154-X (Version None)
Quarter: 2010Q3

REPORT INFORMATION
  Report Type: 
  Country: None (occurrence: None)
  Receive Date: 20100813
  Receipt Date: 20100729
  Transmission Date: 20110219
  Serious: Yes (Hospitalization)
  Sender: FDA-Public Use
  Company Number: 231185J08USA

PATIENT
  Age: 44 Year
  Sex: Female

DRUGS (1)
  1. REBIF [Suspect]
     Indication: MULTIPLE SCLEROSIS
     Dosage: 44 MCG, 3 IN 1 WK, SUBCUTANEOUS
     Route: 058
     Dates: start: 20050601, end: 20080229

REACTIONS (13)
  - AGITATION [None]
  - ANXIETY [None]
  - BIPOLAR DISORDER [None]
  - COGNITIVE DISORDER [None]
  - DEPRESSION [None]
  - DISCOMFORT [None]
  - ECONOMIC PROBLEM [None]
  - FATIGUE [None]
  - NAUSEA [None]
  - NO THERAPEUTIC RESPONSE [None]
  - PARAESTHESIA [None]
  - SEDATION [None]
  - SUICIDAL IDEATION [None]
